FAERS Safety Report 18619590 (Version 2)
Quarter: 2021Q1

REPORT INFORMATION
  Report Type: Report from Study
  Country: None (occurrence: US)
  Receive Date: 20201215
  Receipt Date: 20210322
  Transmission Date: 20210419
  Serious: Yes (Hospitalization)
  Sender: FDA-Public Use
  Company Number: US-ABBVIE-20K-163-3691245-00

PATIENT
  Age: 44 Year
  Sex: Male
  Weight: 78.09 kg

DRUGS (3)
  1. COVID?19 VACCINE [Concomitant]
     Dosage: PFIZER
     Route: 030
     Dates: start: 20210204, end: 20210204
  2. HUMIRA [Suspect]
     Active Substance: ADALIMUMAB
     Indication: PSORIASIS
     Dosage: CITRATE FREE
     Route: 058
     Dates: start: 2019
  3. COVID?19 VACCINE [Concomitant]
     Indication: COVID-19 IMMUNISATION
     Dosage: PFIZER
     Route: 030
     Dates: start: 20210114, end: 20210114

REACTIONS (3)
  - Pain [Recovering/Resolving]
  - Asthenia [Recovering/Resolving]
  - Trigger finger [Recovering/Resolving]

NARRATIVE: CASE EVENT DATE: 2020
